FAERS Safety Report 21842880 (Version 1)
Quarter: 2023Q1

REPORT INFORMATION
  Report Type: Spontaneous
  Country: US (occurrence: US)
  Receive Date: 20230110
  Receipt Date: 20230110
  Transmission Date: 20230418
  Serious: No
  Sender: FDA-Public Use
  Company Number: US-ABBVIE-4222840

PATIENT
  Age: 78 Year
  Sex: Female

DRUGS (2)
  1. SYNTHROID [Suspect]
     Active Substance: LEVOTHYROXINE SODIUM
     Indication: Product used for unknown indication
     Route: 048
     Dates: start: 1960
  2. SYNTHROID [Suspect]
     Active Substance: LEVOTHYROXINE SODIUM
     Indication: Product used for unknown indication
     Route: 048
     Dates: start: 2010

REACTIONS (9)
  - Swelling face [Unknown]
  - Skin disorder [Unknown]
  - Headache [Unknown]
  - Swelling face [Recovered/Resolved]
  - Peripheral swelling [Unknown]
  - Hair disorder [Unknown]
  - Dyspnoea [Unknown]
  - Skin discolouration [Recovered/Resolved]
  - Erythema [Unknown]
